FAERS Safety Report 5842555-6 (Version None)
Quarter: 2008Q3

REPORT INFORMATION
  Report Type: 
  Country: None (occurrence: None)
  Receive Date: 20080812
  Receipt Date: 20080731
  Transmission Date: 20090109
  Serious: Yes (Other)
  Sender: FDA-Public Use
  Company Number: CH-PFIZER INC-2008057944

PATIENT
  Sex: Female
  Weight: 52.6 kg

DRUGS (3)
  1. SOLU-CORTEF [Suspect]
     Indication: PROPHYLAXIS
     Route: 037
  2. CYTOSAR [Suspect]
     Indication: PROPHYLAXIS
     Route: 037
  3. METHOTREXATE [Suspect]
     Indication: PROPHYLAXIS
     Route: 037

REACTIONS (7)
  - FAECAL INCONTINENCE [None]
  - INTENTIONAL DRUG MISUSE [None]
  - MYOCLONUS [None]
  - PARAESTHESIA [None]
  - PHARMACEUTICAL PRODUCT COMPLAINT [None]
  - THERAPEUTIC PRODUCT CONTAMINATION [None]
  - URINARY INCONTINENCE [None]
